FAERS Safety Report 8120255-X (Version None)
Quarter: 2012Q1

REPORT INFORMATION
  Report Type: 
  Country: None (occurrence: None)
  Receive Date: 20120207
  Receipt Date: 20120130
  Transmission Date: 20120608
  Serious: Yes (Hospitalization, Other)
  Sender: FDA-Public Use
  Company Number: PHEH2012US001306

PATIENT
  Sex: Female
  Weight: 63 kg

DRUGS (14)
  1. POTASSIUM CHLORIDE [Concomitant]
     Dosage: 10 UKN, UNK
  2. VALTURNA [Suspect]
     Dosage: 1 DF (300/160), UNK
     Dates: start: 20110601, end: 20111218
  3. VALTURNA [Suspect]
     Dosage: 1 DF (300/320), UNK
     Dates: end: 20120110
  4. NEXIUM [Concomitant]
     Dosage: 40 UKN, UNK
  5. DIOVAN [Concomitant]
     Dosage: 160 UKN, UNK
  6. SOTALOL HCL [Concomitant]
     Indication: HYPERTENSION
     Dosage: 80 MG, BID
  7. SOTALOL HCL [Concomitant]
     Indication: ARRHYTHMIA
  8. BETAPACE [Concomitant]
     Dosage: BID (120 AM, 80 PM)
  9. TEKTURNA [Concomitant]
     Dosage: 300 UKN, UNK
  10. VALTURNA [Suspect]
     Indication: HYPERTENSION
     Dosage: 1 DF(150/160), QD
  11. ASPIRIN [Concomitant]
     Dosage: UNK UKN, UNK
  12. VITAMIN D [Concomitant]
     Dosage: 3000 UKN, UNK
  13. PLANEX [Concomitant]
     Dosage: 75 UKN, UNK
  14. IMDUR [Concomitant]
     Dosage: 630 UKN, UNK

REACTIONS (12)
  - CEREBROVASCULAR ACCIDENT [None]
  - MITRAL VALVE CALCIFICATION [None]
  - FEELING ABNORMAL [None]
  - CAROTID ARTERY STENOSIS [None]
  - REFLEXES ABNORMAL [None]
  - APHASIA [None]
  - DYSARTHRIA [None]
  - DILATATION ATRIAL [None]
  - HEADACHE [None]
  - BRADYKINESIA [None]
  - BLOOD PRESSURE DIASTOLIC DECREASED [None]
  - WHITE BLOOD CELL COUNT INCREASED [None]
